FAERS Safety Report 7989214-1 (Version None)
Quarter: 2011Q4

REPORT INFORMATION
  Report Type: 
  Country: None (occurrence: None)
  Receive Date: 20111215
  Receipt Date: 20111215
  Transmission Date: 20120403
  Serious: No
  Sender: FDA-Public Use
  Company Number: None

PATIENT
  Age: 31 Year
  Sex: Female

DRUGS (3)
  1. SELEGILINE (EMSAM) [Suspect]
     Dates: start: 20101018, end: 20101023
  2. MERCAPTOPURINE(6MP) [Suspect]
     Dates: start: 20100831, end: 20101025
  3. REMERON [Suspect]
     Dates: start: 20100901, end: 20101023

REACTIONS (5)
  - JAUNDICE [None]
  - NAUSEA [None]
  - LIVER INJURY [None]
  - HEPATIC ENZYME INCREASED [None]
  - DIARRHOEA [None]
